FAERS Safety Report 9389248 (Version 2)
Quarter: 2013Q3

REPORT INFORMATION
  Report Type: Spontaneous
  Country: US (occurrence: US)
  Receive Date: 20130708
  Receipt Date: 20130807
  Transmission Date: 20140515
  Serious: Yes (Other)
  Sender: FDA-Public Use
  Company Number: US-AMGEN-USASP2013042566

PATIENT
  Age: 53 Year
  Sex: Female
  Weight: 59.86 kg

DRUGS (4)
  1. ENBREL [Suspect]
     Indication: PSORIATIC ARTHROPATHY
     Dosage: 50 MG, QWK
     Route: 065
     Dates: start: 20130401, end: 20130521
  2. ENBREL [Suspect]
     Indication: PSORIASIS
  3. LEVOTHYROXINE [Concomitant]
     Dosage: 125 MUG, QD
  4. CALCIUM + VITAMIN D [Concomitant]
     Dosage: UNK

REACTIONS (5)
  - Urinary tract infection [Recovered/Resolved]
  - Pyrexia [Recovered/Resolved]
  - Headache [Recovered/Resolved]
  - Nasal congestion [Recovered/Resolved]
  - Oropharyngeal pain [Recovered/Resolved]
